FAERS Safety Report 26133935 (Version 1)
Quarter: 2025Q4

REPORT INFORMATION
  Report Type: Report from Study
  Country: US (occurrence: US)
  Receive Date: 20251209
  Receipt Date: 20251209
  Transmission Date: 20260117
  Serious: No
  Sender: DECIPHERA PHARMACEUTICALS
  Company Number: US-DECIPHERA PHARMACEUTICALS LLC-2025US001487

PATIENT
  Age: 74 Year
  Sex: Male

DRUGS (1)
  1. QINLOCK [Suspect]
     Active Substance: RIPRETINIB
     Indication: Gastrointestinal stromal tumour
     Dosage: 50 MILLIGRAM, QD
     Dates: start: 20250814

REACTIONS (6)
  - Rhinorrhoea [Unknown]
  - Productive cough [Unknown]
  - Upper-airway cough syndrome [Unknown]
  - Nasal congestion [Unknown]
  - Cough [Unknown]
  - Prescribed underdose [Unknown]

NARRATIVE: CASE EVENT DATE: 20250814
